FAERS Safety Report 8339518-8 (Version None)
Quarter: 2012Q2

REPORT INFORMATION
  Report Type: 
  Country: None (occurrence: None)
  Receive Date: 20120507
  Receipt Date: 20120426
  Transmission Date: 20120825
  Serious: Yes (Other)
  Sender: FDA-Public Use
  Company Number: US-GENZYME-THYR-1000703

PATIENT

DRUGS (2)
  1. THYROGEN [Suspect]
     Indication: DIAGNOSTIC PROCEDURE
     Dosage: UNK; QD
     Route: 065
     Dates: start: 20100501, end: 20100501
  2. THYROID HORMONES [Concomitant]
     Indication: PRODUCT USED FOR UNKNOWN INDICATION
     Dosage: UNK
     Route: 065
     Dates: end: 20110901

REACTIONS (5)
  - THYROID CANCER [None]
  - YAWNING [None]
  - NAUSEA [None]
  - HEADACHE [None]
  - HYPOTHYROIDISM [None]
